FAERS Safety Report 9556207 (Version 1)
Quarter: 2013Q3

REPORT INFORMATION
  Report Type: Spontaneous
  Country: SZ (occurrence: None)
  Receive Date: 20130924
  Receipt Date: 20130924
  Transmission Date: 20140515
  Serious: Yes (Hospitalization)
  Sender: FDA-Public Use
  Company Number: 20130497

PATIENT
  Age: 26 Year
  Sex: Female
  Weight: 65 kg

DRUGS (1)
  1. FERINJECT [Suspect]
     Indication: ANAEMIA OF PREGNANCY
     Route: 042
     Dates: start: 20130812, end: 20130819

REACTIONS (3)
  - Urticaria [None]
  - Pruritus [None]
  - Oedema peripheral [None]
